FAERS Safety Report 16284439 (Version 1)
Quarter: 2019Q2

REPORT INFORMATION
  Report Type: Spontaneous
  Country: US (occurrence: US)
  Receive Date: 20190508
  Receipt Date: 20190508
  Transmission Date: 20190711
  Serious: No
  Sender: FDA-Public Use
  Company Number: US-ASTRAZENECA-2019SE55412

PATIENT
  Age: 73 Year
  Sex: Female

DRUGS (6)
  1. CELECOXIB. [Suspect]
     Active Substance: CELECOXIB
  2. CARVEDILOL. [Suspect]
     Active Substance: CARVEDILOL
     Dosage: UNKNOWN
     Route: 065
  3. HUMIRA [Suspect]
     Active Substance: ADALIMUMAB
     Dosage: 40MG/0.8 ML
     Route: 058
     Dates: start: 201801
  4. NEXIUM [Suspect]
     Active Substance: ESOMEPRAZOLE MAGNESIUM
     Dosage: UNKNOWN
     Route: 048
  5. CEVIMELINE. [Suspect]
     Active Substance: CEVIMELINE
  6. DULOXETINE. [Suspect]
     Active Substance: DULOXETINE

REACTIONS (4)
  - Abdominal discomfort [Unknown]
  - Diarrhoea [Not Recovered/Not Resolved]
  - Food intolerance [Not Recovered/Not Resolved]
  - Gastrointestinal disorder [Unknown]

NARRATIVE: CASE EVENT DATE: 2019
